FAERS Safety Report 20882327 (Version 2)
Quarter: 2022Q2

REPORT INFORMATION
  Report Type: Report from Study
  Country: US (occurrence: US)
  Receive Date: 20220527
  Receipt Date: 20220605
  Transmission Date: 20220720
  Serious: No
  Sender: FDA-Public Use
  Company Number: US-UCBSA-2022027745

PATIENT
  Sex: Female

DRUGS (2)
  1. ROTIGOTINE [Suspect]
     Active Substance: ROTIGOTINE
     Indication: Restless legs syndrome
     Dosage: 4MG 1 PATCH DAILY
  2. ROTIGOTINE [Suspect]
     Active Substance: ROTIGOTINE
     Dosage: APPLYING PATCH UP TO 36HRS

REACTIONS (3)
  - Intentional product misuse [Unknown]
  - Overdose [Unknown]
  - Product adhesion issue [Unknown]
